FAERS Safety Report 16441082 (Version 1)
Quarter: 2019Q2

REPORT INFORMATION
  Report Type: Spontaneous
  Country: US (occurrence: US)
  Receive Date: 20190617
  Receipt Date: 20190617
  Transmission Date: 20190711
  Serious: Yes (Other)
  Sender: FDA-Public Use
  Company Number: US-TEVA-2019-US-1062610

PATIENT
  Sex: Female

DRUGS (4)
  1. ACICLOVIR 400 MG [Suspect]
     Active Substance: ACYCLOVIR
     Dosage: 4000 MILLIGRAM DAILY;
     Route: 065
  2. ACICLOVIR 400 MG [Suspect]
     Active Substance: ACYCLOVIR
     Indication: HERPES ZOSTER
     Route: 065
  3. NALTREXONE [Concomitant]
     Active Substance: NALTREXONE
  4. ACICLOVIR 400 MG [Suspect]
     Active Substance: ACYCLOVIR
     Dosage: 2000 MILLIGRAM DAILY; MAINTENANCE DOSE.
     Route: 065

REACTIONS (4)
  - Seizure [Unknown]
  - Drug ineffective [Unknown]
  - Inappropriate schedule of product administration [Unknown]
  - Wrong technique in product usage process [Unknown]
